FAERS Safety Report 23527730 (Version 1)
Quarter: 2024Q1

REPORT INFORMATION
  Report Type: Spontaneous
  Country: CH (occurrence: None)
  Receive Date: 20240215
  Receipt Date: 20240215
  Transmission Date: 20240410
  Serious: Yes (Hospitalization)
  Sender: FDA-Public Use
  Company Number: 2024A031869

PATIENT
  Age: 72 Year
  Sex: Female
  Weight: 50 kg

DRUGS (6)
  1. TICAGRELOR [Suspect]
     Active Substance: TICAGRELOR
     Indication: Acute myocardial infarction
     Route: 048
     Dates: start: 20231112
  2. ATORVASTATIN [Suspect]
     Active Substance: ATORVASTATIN
     Indication: Cardiovascular event prophylaxis
     Route: 048
     Dates: start: 20231112, end: 20231208
  3. ASPIRINE C [Concomitant]
     Indication: Acute myocardial infarction
     Route: 048
     Dates: start: 20231112
  4. NEBIVOLOL [Concomitant]
     Active Substance: NEBIVOLOL
     Indication: Acute myocardial infarction
     Route: 048
     Dates: start: 20231112
  5. RAMIPRIL [Concomitant]
     Active Substance: RAMIPRIL
     Indication: Acute myocardial infarction
     Route: 048
     Dates: start: 202311
  6. ESOMEPRAZOLE [Concomitant]
     Active Substance: ESOMEPRAZOLE
     Indication: Prophylaxis against gastrointestinal ulcer
     Route: 048
     Dates: start: 202311

REACTIONS (1)
  - Hepatic enzyme increased [Recovering/Resolving]

NARRATIVE: CASE EVENT DATE: 20231208
